FAERS Safety Report 5839900-4 (Version None)
Quarter: 2008Q3

REPORT INFORMATION
  Report Type: 
  Country: None (occurrence: None)
  Receive Date: 20080811
  Receipt Date: 20080603
  Transmission Date: 20090109
  Serious: No
  Sender: FDA-Public Use
  Company Number: US-BAYER-200820293NA

PATIENT
  Age: 70 Year
  Sex: Male

DRUGS (8)
  1. LEVITRA [Suspect]
     Indication: ERECTILE DYSFUNCTION
     Dosage: TOTAL DAILY DOSE: 20 MG  UNIT DOSE: 10 MG
     Route: 048
     Dates: start: 20080418, end: 20080418
  2. LEVITRA [Suspect]
     Dosage: TOTAL DAILY DOSE: 10 MG  UNIT DOSE: 10 MG
     Route: 048
     Dates: start: 20080418, end: 20080418
  3. LEVITRA [Suspect]
     Dosage: TOTAL DAILY DOSE: 10 MG  UNIT DOSE: 10 MG
     Route: 048
     Dates: start: 20080416, end: 20080416
  4. MEDROL [Concomitant]
     Indication: BACK PAIN
  5. FLEXERIL [Concomitant]
     Indication: BACK PAIN
  6. ZOCOR [Concomitant]
     Indication: BLOOD CHOLESTEROL INCREASED
  7. SYNTHROID [Concomitant]
  8. GLUCOSAMINE CHONDROITIN [Concomitant]

REACTIONS (1)
  - ERECTILE DYSFUNCTION [None]
